FAERS Safety Report 12934205 (Version 3)
Quarter: 2017Q3

REPORT INFORMATION
  Report Type: Report from Study
  Country: US (occurrence: US)
  Receive Date: 20161111
  Receipt Date: 20170830
  Transmission Date: 20171127
  Serious: Yes (Hospitalization, Other)
  Sender: FDA-Public Use
  Company Number: PHEH2016US029322

PATIENT
  Age: 62 Year
  Sex: Female
  Weight: 53.1 kg

DRUGS (11)
  1. NEORAL [Suspect]
     Active Substance: CYCLOSPORINE
     Indication: PROPHYLAXIS AGAINST TRANSPLANT REJECTION
  2. FOSAMAX [Concomitant]
     Active Substance: ALENDRONATE SODIUM
     Indication: PRODUCT USED FOR UNKNOWN INDICATION
     Dosage: 1 DF, WEEKLY (IN MORNING)
     Route: 048
  3. MAGNESIUM OXIDE. [Concomitant]
     Active Substance: MAGNESIUM OXIDE
     Indication: PRODUCT USED FOR UNKNOWN INDICATION
     Dosage: 400 MG, QD (AT NOON)
     Route: 048
  4. DELTASONE [Concomitant]
     Active Substance: PREDNISONE
     Indication: PRODUCT USED FOR UNKNOWN INDICATION
     Dosage: 1 DF, QD (IN MORNING)
     Route: 048
  5. NEORAL [Suspect]
     Active Substance: CYCLOSPORINE
     Indication: RENAL TRANSPLANT
     Dosage: 125 MG,(75 MG AM, 50 MG PM)
     Route: 048
     Dates: start: 20050215
  6. CELLCEPT [Concomitant]
     Active Substance: MYCOPHENOLATE MOFETIL\MYCOPHENOLATE MOFETIL HYDROCHLORIDE
     Indication: PRODUCT USED FOR UNKNOWN INDICATION
     Dosage: 750 MG, BID (250 MG 1 CAPSULE IN AM, 500 MG 2 CAPS IN PM)
     Route: 048
  7. FLONASE [Concomitant]
     Active Substance: FLUTICASONE PROPIONATE
     Indication: HYPOTENSION
     Dosage: 50 UG, QD (2 SPRAYS IN ECAH NOSTRIL IN MORNING)
     Route: 055
  8. SANDIMMUNE [Suspect]
     Active Substance: CYCLOSPORINE
     Indication: RENAL TRANSPLANT
     Route: 065
  9. FLORINEF ACETATE [Concomitant]
     Active Substance: FLUDROCORTISONE ACETATE
     Indication: HYPOTENSION
     Dosage: 3 DF, QD (PRN)
     Route: 065
  10. CHOLECALCIFEROL [Concomitant]
     Active Substance: CHOLECALCIFEROL
     Indication: PRODUCT USED FOR UNKNOWN INDICATION
     Dosage: 2000 U, QD (AT NOON)
     Route: 048
  11. ROMYCIN [Concomitant]
     Indication: PRODUCT USED FOR UNKNOWN INDICATION
     Dosage: IN LEFT EYE, EVERY 6 HOURS
     Route: 065

REACTIONS (17)
  - Atrial fibrillation [Recovered/Resolved]
  - Hypertension [Unknown]
  - Chest discomfort [Unknown]
  - Vomiting [Unknown]
  - Vertigo [Recovered/Resolved]
  - Transplant rejection [Unknown]
  - Osteoporosis [Unknown]
  - Dizziness [Unknown]
  - Hypotension [Unknown]
  - Sinusitis [Unknown]
  - Impaired healing [Unknown]
  - Palpitations [Unknown]
  - Rhinitis [Recovered/Resolved]
  - Diastolic dysfunction [Unknown]
  - Nausea [Unknown]
  - Anxiety [Unknown]
  - Lower limb fracture [Unknown]

NARRATIVE: CASE EVENT DATE: 20170211
